FAERS Safety Report 7496622-4 (Version None)
Quarter: 2011Q2

REPORT INFORMATION
  Report Type: 
  Country: None (occurrence: None)
  Receive Date: 20110520
  Receipt Date: 20110520
  Transmission Date: 20111010
  Serious: Yes (Other)
  Sender: FDA-Public Use
  Company Number: None

PATIENT
  Age: 54 Year
  Sex: Female
  Weight: 95.2554 kg

DRUGS (1)
  1. ZONISAMIDE [Suspect]
     Indication: PAIN
     Dosage: 25MG 4 TIMES DAILY PO
     Route: 048
     Dates: start: 20110421, end: 20110515

REACTIONS (1)
  - MUSCLE SPASMS [None]
